FAERS Safety Report 4598288-X (Version None)
Quarter: 2005Q1

REPORT INFORMATION
  Report Type: 
  Country: None (occurrence: None)
  Receive Date: 20050301
  Receipt Date: 20050301
  Transmission Date: 20050727
  Serious: Yes (Hospitalization)
  Sender: FDA-Public Use
  Company Number: None

PATIENT
  Age: 45 Year
  Sex: Male
  Weight: 94.3482 kg

DRUGS (3)
  1. TAXOTERE [Suspect]
     Indication: GASTRIC CANCER
     Dosage: 84 MG  , D1 - 8, 10 IV
     Dates: start: 20040901, end: 20050101
  2. CARBOPLATIN [Suspect]
     Indication: GASTRIC CANCER
     Dosage: 329 MG , D1 - 8, 10
     Dates: start: 20040901, end: 20050101
  3. CAPECITABINE [Suspect]
     Indication: GASTRIC CANCER
     Dosage: 4000 MG/D/X 10 D PO
     Route: 048
     Dates: start: 20040901, end: 20050101

REACTIONS (2)
  - SWELLING FACE [None]
  - VENOUS THROMBOSIS LIMB [None]
